FAERS Safety Report 9098658 (Version 2)
Quarter: 2013Q2

REPORT INFORMATION
  Report Type: Spontaneous
  Country: US (occurrence: US)
  Receive Date: 20130213
  Receipt Date: 20130530
  Transmission Date: 20140414
  Serious: Yes (Hospitalization)
  Sender: FDA-Public Use
  Company Number: US-B.I. PHARMACEUTICALS,INC./RIDGEFIELD-2013-BI-03527BP

PATIENT
  Age: 73 Year
  Sex: Female
  Weight: 62.6 kg

DRUGS (8)
  1. PRADAXA [Suspect]
     Indication: ANTICOAGULANT THERAPY
     Dosage: 300 MG
     Dates: start: 20110728, end: 20111028
  2. PRADAXA [Suspect]
     Indication: ATRIAL FIBRILLATION
  3. DIGOXIN [Concomitant]
     Dosage: 0.125 MG
     Route: 048
  4. VERAPAMIL [Concomitant]
     Dosage: 120 MG
     Route: 048
  5. HYDROCHLOROTHIAZIDE [Concomitant]
     Dosage: 25 MG
     Route: 048
  6. TRAZODONE [Concomitant]
     Dosage: 50 MG
  7. SYNTHROID [Concomitant]
     Dosage: 0.025 MG
     Route: 048
  8. CELEBREX [Concomitant]
     Dosage: 200 MG
     Route: 048

REACTIONS (3)
  - Gastrointestinal haemorrhage [Unknown]
  - Acute respiratory failure [Unknown]
  - Hypovolaemic shock [Unknown]
